FAERS Safety Report 6475157-1 (Version None)
Quarter: 2009Q4

REPORT INFORMATION
  Report Type: 
  Country: None (occurrence: None)
  Receive Date: 20091204
  Receipt Date: 20090708
  Transmission Date: 20100525
  Serious: Yes (Death, Hospitalization, Other)
  Sender: FDA-Public Use
  Company Number: IN-ELI_LILLY_AND_COMPANY-IN200903004786

PATIENT
  Age: 77 Year
  Sex: Female

DRUGS (1)
  1. XIGRIS [Suspect]
     Indication: MULTI-ORGAN FAILURE
     Dosage: UNK, UNKNOWN
     Route: 042
     Dates: start: 20090309, end: 20090313

REACTIONS (4)
  - CELLULITIS [None]
  - MULTI-ORGAN FAILURE [None]
  - OFF LABEL USE [None]
  - PLATELET COUNT DECREASED [None]
